FAERS Safety Report 6028315-4 (Version None)
Quarter: 2009Q1

REPORT INFORMATION
  Report Type: 
  Country: None (occurrence: None)
  Receive Date: 20090106
  Receipt Date: 20081224
  Transmission Date: 20090719
  Serious: Yes (Other)
  Sender: FDA-Public Use
  Company Number: US-PFIZER INC-2008161157

PATIENT
  Sex: Female
  Weight: 47.627 kg

DRUGS (3)
  1. DEPO-MEDROL [Suspect]
     Indication: SOFT TISSUE INJURY
     Dates: start: 20080601
  2. HYDROCODONE [Concomitant]
  3. DIAZEPAM [Concomitant]

REACTIONS (5)
  - CONTUSION [None]
  - HAEMORRHAGE [None]
  - INCORRECT ROUTE OF DRUG ADMINISTRATION [None]
  - MOOD SWINGS [None]
  - PYREXIA [None]
